FAERS Safety Report 17740702 (Version 3)
Quarter: 2020Q4

REPORT INFORMATION
  Report Type: Spontaneous
  Country: US (occurrence: US)
  Receive Date: 20200504
  Receipt Date: 20201216
  Transmission Date: 20210113
  Serious: Yes (Other)
  Sender: FDA-Public Use
  Company Number: US-GLAXOSMITHKLINE-US2020AMR074918

PATIENT
  Sex: Female

DRUGS (1)
  1. BENLYSTA [Suspect]
     Active Substance: BELIMUMAB
     Indication: SYSTEMIC LUPUS ERYTHEMATOSUS
     Dosage: UNK
     Route: 042
     Dates: start: 20200430

REACTIONS (6)
  - Asthenia [Unknown]
  - Malaise [Unknown]
  - Product dose omission issue [Unknown]
  - Systemic lupus erythematosus [Unknown]
  - Weight decreased [Unknown]
  - Stress [Unknown]
